FAERS Safety Report 4450341-7 (Version None)
Quarter: 2004Q3

REPORT INFORMATION
  Report Type: 
  Country: None (occurrence: None)
  Receive Date: 20040915
  Receipt Date: 20040902
  Transmission Date: 20050211
  Serious: Yes (Hospitalization)
  Sender: FDA-Public Use
  Company Number: 2004061775

PATIENT
  Age: 47 Year
  Sex: Female
  Weight: 91.173 kg

DRUGS (2)
  1. SUDAFED 24 HOUR TABLETS (PSEUDOEPHEDRINE) [Suspect]
     Indication: SINUSITIS
     Dosage: TAB QD, ORAL
     Route: 048
     Dates: start: 20040101
  2. CLOPIDOGREL BISULFATE [Concomitant]

REACTIONS (1)
  - HEART RATE INCREASED [None]
